APPROVED DRUG PRODUCT: PHENYTOIN SODIUM
Active Ingredient: PHENYTOIN SODIUM
Strength: 50MG/ML
Dosage Form/Route: INJECTABLE;INJECTION
Application: A040573 | Product #001 | TE Code: AP
Applicant: ACELLA PHARMACEUTICALS LLC
Approved: Sep 13, 2006 | RLD: No | RS: No | Type: RX